FAERS Safety Report 5574786-7 (Version None)
Quarter: 2007Q4

REPORT INFORMATION
  Report Type: 
  Country: None (occurrence: None)
  Receive Date: 20071227
  Receipt Date: 20071220
  Transmission Date: 20080405
  Serious: Yes (Hospitalization)
  Sender: FDA-Public Use
  Company Number: JP-MERCK-0712USA08528

PATIENT
  Age: 36 Year
  Sex: Female

DRUGS (6)
  1. COZAAR [Suspect]
     Route: 048
  2. PREDNISOLONE [Concomitant]
     Route: 065
  3. WARFARIN [Concomitant]
     Route: 065
  4. DIGOXIN [Concomitant]
     Route: 065
  5. SPIRONOLACTONE [Concomitant]
     Route: 065
  6. FUROSEMIDE [Concomitant]
     Route: 065

REACTIONS (2)
  - CARDIAC FAILURE ACUTE [None]
  - PULMONARY HYPERTENSION [None]
